FAERS Safety Report 5757179-9 (Version None)
Quarter: 2008Q2

REPORT INFORMATION
  Report Type: 
  Country: None (occurrence: None)
  Receive Date: 20080529
  Receipt Date: 20080520
  Transmission Date: 20081010
  Serious: Yes (Disabling, Other)
  Sender: FDA-Public Use
  Company Number: 2008AP000812

PATIENT
  Sex: Male

DRUGS (3)
  1. TRAZODONE HCL [Suspect]
     Indication: DEPRESSION
     Dosage: 150 MG; ; PO
     Route: 048
  2. TRAZODONE HCL [Suspect]
     Indication: INSOMNIA
     Dosage: 150 MG; ; PO
     Route: 048
  3. TRAZODONE HCL [Suspect]

REACTIONS (8)
  - DRUG WITHDRAWAL SYNDROME [None]
  - IMPAIRED WORK ABILITY [None]
  - NOCTURIA [None]
  - POOR QUALITY DRUG ADMINISTERED [None]
  - SLEEP DISORDER [None]
  - SLEEP-RELATED EATING DISORDER [None]
  - WEIGHT DECREASED [None]
  - WEIGHT INCREASED [None]
